FAERS Safety Report 8231271-1 (Version None)
Quarter: 2012Q1

REPORT INFORMATION
  Report Type: 
  Country: None (occurrence: None)
  Receive Date: 20120323
  Receipt Date: 20120320
  Transmission Date: 20120608
  Serious: No
  Sender: FDA-Public Use
  Company Number: US-BAYER-2012-028189

PATIENT
  Age: 66 Year
  Sex: Female
  Weight: 82 kg

DRUGS (3)
  1. RANITIDINE [Concomitant]
  2. ALEVE (CAPLET) [Suspect]
     Dosage: 1 U, QD
     Route: 048
     Dates: start: 20120301, end: 20120316
  3. SIMVASTATIN [Concomitant]

REACTIONS (1)
  - RASH [None]
